FAERS Safety Report 7339552-0 (Version None)
Quarter: 2011Q1

REPORT INFORMATION
  Report Type: 
  Country: None (occurrence: None)
  Receive Date: 20110308
  Receipt Date: 20110215
  Transmission Date: 20110831
  Serious: No
  Sender: FDA-Public Use
  Company Number: US-AMGEN-USASP2011009225

PATIENT
  Age: 69 Year
  Sex: Female

DRUGS (3)
  1. FISH OIL [Concomitant]
  2. CALCIUM [Concomitant]
  3. PROLIA [Suspect]
     Indication: OSTEOPOROSIS POSTMENOPAUSAL
     Dosage: 60 MG, Q6MO
     Dates: start: 20101212

REACTIONS (2)
  - ARTHRALGIA [None]
  - BACK PAIN [None]
